FAERS Safety Report 23433983 (Version 1)
Quarter: 2024Q1

REPORT INFORMATION
  Report Type: Spontaneous
  Country: JP (occurrence: JP)
  Receive Date: 20240123
  Receipt Date: 20240123
  Transmission Date: 20240410
  Serious: Yes (Death, Hospitalization, Other)
  Sender: FDA-Public Use
  Company Number: JP-EPICPHARMA-JP-2024EPCLIT00076

PATIENT
  Age: 71 Year
  Sex: Male

DRUGS (2)
  1. CEFTRIAXONE SODIUM [Suspect]
     Active Substance: CEFTRIAXONE SODIUM
     Indication: Pneumonia
     Route: 065
  2. ASPIRIN [Concomitant]
     Active Substance: ASPIRIN
     Indication: Pneumonia
     Route: 065

REACTIONS (5)
  - Acquired factor V deficiency [Fatal]
  - Gastrointestinal haemorrhage [Fatal]
  - Cerebellar haemorrhage [Fatal]
  - Pulmonary embolism [Fatal]
  - Acute kidney injury [Fatal]
